FAERS Safety Report 19398592 (Version 1)
Quarter: 2021Q2

REPORT INFORMATION
  Report Type: Spontaneous
  Country: US (occurrence: US)
  Receive Date: 20210609
  Receipt Date: 20210609
  Transmission Date: 20210717
  Serious: Yes (Other)
  Sender: FDA-Public Use
  Company Number: None

PATIENT
  Age: 42 Year
  Sex: Male
  Weight: 103.5 kg

DRUGS (1)
  1. DIBAR LABS HAND SANITIZER [Suspect]
     Active Substance: ALCOHOL
     Route: 008

REACTIONS (6)
  - Chemical burn [None]
  - Skin burning sensation [None]
  - Blister [None]
  - Pruritus [None]
  - Rash [None]
  - Skin exfoliation [None]

NARRATIVE: CASE EVENT DATE: 20210519
